FAERS Safety Report 4652610-4 (Version None)
Quarter: 2005Q2

REPORT INFORMATION
  Report Type: 
  Country: None (occurrence: None)
  Receive Date: 20050502
  Receipt Date: 20050420
  Transmission Date: 20051028
  Serious: Yes (Death)
  Sender: FDA-Public Use
  Company Number: A-CH2005-09520

PATIENT
  Age: 50 Year
  Sex: Male
  Weight: 84.1 kg

DRUGS (1)
  1. TRACLEER [Suspect]
     Indication: PULMONARY HYPERTENSION
     Dosage: 125 MG, BID, ORAL
     Route: 048
     Dates: start: 20031218, end: 20050301

REACTIONS (2)
  - POST PROCEDURAL COMPLICATION [None]
  - THROMBOENDARTERECTOMY [None]
